FAERS Safety Report 4655899-0 (Version None)
Quarter: 2005Q2

REPORT INFORMATION
  Report Type: 
  Country: None (occurrence: None)
  Receive Date: 20050505
  Receipt Date: 20050415
  Transmission Date: 20051028
  Serious: Yes (Hospitalization)
  Sender: FDA-Public Use
  Company Number: EWC050443594

PATIENT
  Age: 56 Year
  Sex: Male

DRUGS (8)
  1. HUMALOG MIX 50/50 [Suspect]
     Indication: DIABETES MELLITUS
     Dosage: 10 U IN THE MORNING
     Dates: end: 20050328
  2. HUMALOG MIX 50/50 [Suspect]
     Indication: DIABETES MELLITUS
     Dosage: 8 U AT NOON
     Dates: end: 20050328
  3. HUMALOG [Suspect]
     Indication: DIABETES MELLITUS
     Dosage: 12 U IN THE EVENING
     Dates: end: 20050328
  4. HUMALOG [Suspect]
     Indication: DIABETES MELLITUS
     Dosage: 12 U IN THE EVENING
     Dates: end: 20050328
  5. LASIX [Concomitant]
  6. PLAVIX [Concomitant]
  7. ZOK (METOPROLOL SUCCINATE) [Concomitant]
  8. ZOCOR (SIMVASTATIN RATIOPHARM) [Concomitant]

REACTIONS (3)
  - DRUG INTERACTION [None]
  - HYPOGLYCAEMIA [None]
  - VOMITING [None]
